FAERS Safety Report 16807233 (Version 1)
Quarter: 2019Q3

REPORT INFORMATION
  Report Type: Spontaneous
  Country: US (occurrence: US)
  Receive Date: 20190913
  Receipt Date: 20190913
  Transmission Date: 20191005
  Serious: No
  Sender: FDA-Public Use
  Company Number: US-3M-2018-US-017367

PATIENT
  Age: 34 Year
  Sex: Female
  Weight: 137.44 kg

DRUGS (1)
  1. CHLORHEXIDINE GLUCONATE (NON-SPECIFIC) [Suspect]
     Active Substance: CHLORHEXIDINE GLUCONATE
     Indication: AGEUSIA
     Dosage: USED TWICE
     Route: 048
     Dates: start: 20170228, end: 20170228

REACTIONS (2)
  - Product use in unapproved indication [Unknown]
  - Taste disorder [Not Recovered/Not Resolved]

NARRATIVE: CASE EVENT DATE: 20170228
